FAERS Safety Report 23916406 (Version 1)
Quarter: 2024Q2

REPORT INFORMATION
  Report Type: Spontaneous
  Country: DE (occurrence: DE)
  Receive Date: 20240529
  Receipt Date: 20240529
  Transmission Date: 20240715
  Serious: Yes (Other)
  Sender: FDA-Public Use
  Company Number: DE-SANDOZ-SDZ2024DE052033

PATIENT
  Age: 77 Year
  Sex: Female

DRUGS (5)
  1. CARBOPLATIN [Suspect]
     Active Substance: CARBOPLATIN
     Indication: Product used for unknown indication
     Dosage: 100 MG
     Route: 065
     Dates: start: 201401
  2. CARBOPLATIN [Suspect]
     Active Substance: CARBOPLATIN
     Dosage: 300 MG PER CYCLE
     Route: 065
  3. OLAPARIB [Suspect]
     Active Substance: OLAPARIB
     Indication: Product used for unknown indication
     Dosage: 200 MG, BID
     Route: 065
     Dates: start: 201604
  4. PACLITAXEL [Suspect]
     Active Substance: PACLITAXEL
     Indication: Product used for unknown indication
     Dosage: 175 MG/M2
     Route: 065
     Dates: start: 201401
  5. HEPARIN [Concomitant]
     Active Substance: HEPARIN SODIUM
     Indication: Product used for unknown indication
     Dosage: 1000 UNITS/HOUR AFTER A STARTING BOLUS OF 1000 IE
     Route: 065

REACTIONS (3)
  - Delirium [Unknown]
  - Cognitive disorder [Unknown]
  - Paraneoplastic syndrome [Unknown]
